FAERS Safety Report 9410091 (Version 8)
Quarter: 2014Q3

REPORT INFORMATION
  Report Type: Spontaneous
  Country: US (occurrence: US)
  Receive Date: 20130719
  Receipt Date: 20140926
  Transmission Date: 20150326
  Serious: Yes (Death, Hospitalization)
  Sender: FDA-Public Use
  Company Number: US-ACTELION-A-NJ2013-85765

PATIENT
  Age: 73 Year
  Sex: Female

DRUGS (7)
  1. LASIX [Concomitant]
     Active Substance: FUROSEMIDE
     Dosage: 40 MG, UNK
  2. SPIRONOLACTONE. [Concomitant]
     Active Substance: SPIRONOLACTONE
     Dosage: 25 MG, UNK
  3. ADCIRCA [Concomitant]
     Active Substance: TADALAFIL
  4. TRACLEER [Suspect]
     Active Substance: BOSENTAN\BOSENTAN MONOHYDRATE
     Indication: PULMONARY ARTERIAL HYPERTENSION
     Dosage: 125 MG, BID
     Route: 048
     Dates: end: 20140908
  5. ALBUTEROL. [Concomitant]
     Active Substance: ALBUTEROL
     Dosage: 90 MCG, UNK
  6. DIGOXIN. [Concomitant]
     Active Substance: DIGOXIN
     Dosage: 0.125 MG, UNK
  7. ASPIRIN. [Concomitant]
     Active Substance: ASPIRIN
     Dosage: 81 MG, UNK

REACTIONS (12)
  - Oxygen saturation decreased [Unknown]
  - Oedema [Unknown]
  - Pyrexia [Unknown]
  - Fluid retention [Unknown]
  - Oedema peripheral [Recovering/Resolving]
  - Hypoxia [Recovering/Resolving]
  - Wound treatment [Recovering/Resolving]
  - Polyuria [Unknown]
  - Hypotension [Unknown]
  - Dyspnoea [Unknown]
  - Cellulitis [Unknown]
  - Respiratory distress [Fatal]

NARRATIVE: CASE EVENT DATE: 20140115
